FAERS Safety Report 19465125 (Version 1)
Quarter: 2021Q2

REPORT INFORMATION
  Report Type: Spontaneous
  Country: IT (occurrence: IT)
  Receive Date: 20210627
  Receipt Date: 20210627
  Transmission Date: 20210717
  Serious: Yes (Hospitalization)
  Sender: FDA-Public Use
  Company Number: NVSC2021IT137831

PATIENT
  Age: 59 Year
  Sex: Female

DRUGS (3)
  1. PERICIAZINE [Suspect]
     Active Substance: PERICIAZINE
     Indication: DEPRESSION
     Dosage: 100 MG, TOTAL
     Route: 048
     Dates: start: 20210611, end: 20210611
  2. LORMETAZEPAM [Suspect]
     Active Substance: LORMETAZEPAM
     Indication: DEPRESSION
     Dosage: 25 MG, TOTAL
     Route: 048
     Dates: start: 20210611, end: 20210611
  3. PARACETAMOL [Suspect]
     Active Substance: ACETAMINOPHEN
     Indication: PAIN
     Dosage: 4 G, TOTAL
     Route: 048
     Dates: start: 20210611, end: 20210611

REACTIONS (2)
  - Drug abuse [Recovering/Resolving]
  - Sopor [Recovering/Resolving]

NARRATIVE: CASE EVENT DATE: 20210611
